FAERS Safety Report 20865305 (Version 3)
Quarter: 2022Q3

REPORT INFORMATION
  Report Type: Spontaneous
  Country: US (occurrence: US)
  Receive Date: 20220524
  Receipt Date: 20220928
  Transmission Date: 20221027
  Serious: Yes (Other)
  Sender: FDA-Public Use
  Company Number: US-BRISTOL-MYERS SQUIBB COMPANY-2022-038188

PATIENT
  Age: 88 Year
  Sex: Male
  Weight: 72.57 kg

DRUGS (1)
  1. POMALYST [Suspect]
     Active Substance: POMALIDOMIDE
     Indication: Plasma cell myeloma
     Dosage: 3 WEEKS ON, 1WEEK OFF
     Route: 048
     Dates: start: 20220415

REACTIONS (8)
  - Accident [Unknown]
  - Jaw fracture [Unknown]
  - Neuropathy peripheral [Unknown]
  - Oropharyngeal pain [Unknown]
  - Fatigue [Unknown]
  - Balance disorder [Unknown]
  - Decreased appetite [Unknown]
  - Constipation [Unknown]
